FAERS Safety Report 8324940-6 (Version None)
Quarter: 2012Q2

REPORT INFORMATION
  Report Type: 
  Country: None (occurrence: None)
  Receive Date: 20120501
  Receipt Date: 20120423
  Transmission Date: 20120825
  Serious: Yes (Hospitalization, Other)
  Sender: FDA-Public Use
  Company Number: US-ASTELLAS-2012US001619

PATIENT
  Sex: Female
  Weight: 91 kg

DRUGS (5)
  1. PROGRAF [Suspect]
     Indication: PANCREAS TRANSPLANT
     Dosage: 0.5 MG, BID
     Route: 048
     Dates: start: 20120111
  2. CONTRAST MEDIA [Suspect]
     Indication: CATHETERISATION CARDIAC
     Dosage: UNK
     Route: 042
     Dates: start: 20120109, end: 20120109
  3. MYCOPHENOLATE MOFETIL (CELLCEPT) [Concomitant]
     Indication: RENAL TRANSPLANT
     Dosage: UNK
     Route: 065
  4. PROGRAF [Suspect]
     Indication: RENAL TRANSPLANT
     Dosage: 1 MG, BID
     Route: 048
     Dates: start: 20000223
  5. 2B3A MEDICATIONS [Suspect]
     Indication: CATHETERISATION CARDIAC
     Dosage: UNK
     Route: 065
     Dates: start: 20120109, end: 20120109

REACTIONS (33)
  - ARTERIOSCLEROSIS CORONARY ARTERY [None]
  - POSTOPERATIVE WOUND INFECTION [None]
  - RENAL FAILURE ACUTE [None]
  - PERIPHERAL VASCULAR DISORDER [None]
  - DIABETES MELLITUS INADEQUATE CONTROL [None]
  - VASCULAR PSEUDOANEURYSM [None]
  - URINARY TRACT INFECTION [None]
  - THROMBOCYTOPENIA [None]
  - CARDIAC FAILURE CONGESTIVE [None]
  - POSTOPERATIVE ABSCESS [None]
  - ISCHAEMIC CARDIOMYOPATHY [None]
  - PULMONARY HYPERTENSION [None]
  - NORMOCHROMIC NORMOCYTIC ANAEMIA [None]
  - ESCHERICHIA URINARY TRACT INFECTION [None]
  - OFF LABEL USE [None]
  - CARDIORENAL SYNDROME [None]
  - GRAFT THROMBOSIS [None]
  - DEEP VEIN THROMBOSIS [None]
  - DIABETIC NEPHROPATHY [None]
  - BLOOD CREATININE INCREASED [None]
  - HYPERKALAEMIA [None]
  - POST PROCEDURAL COMPLICATION [None]
  - ANURIA [None]
  - DIABETIC NEUROPATHY [None]
  - OSTEOARTHRITIS [None]
  - BLISTER [None]
  - OSTEOPENIA [None]
  - METABOLIC ACIDOSIS [None]
  - DIABETIC RETINOPATHY [None]
  - CYTOMEGALOVIRUS VIRAEMIA [None]
  - CLOSTRIDIAL INFECTION [None]
  - HYPERTENSION [None]
  - HYPERPHOSPHATAEMIA [None]
